FAERS Safety Report 5453944-6 (Version None)
Quarter: 2007Q3

REPORT INFORMATION
  Report Type: 
  Country: None (occurrence: None)
  Receive Date: 20070917
  Receipt Date: 20070423
  Transmission Date: 20080115
  Serious: Yes (Hospitalization, Other)
  Sender: FDA-Public Use
  Company Number: US-ASTRAZENECA-2006AC00282

PATIENT
  Age: 46 Year
  Sex: Male

DRUGS (6)
  1. QUETIAPINE FUMARATE [Suspect]
     Indication: DEPRESSION
     Route: 048
  2. QUETIAPINE FUMARATE [Suspect]
     Indication: PSYCHOTIC DISORDER
     Route: 048
  3. AMPHETAMINE [Suspect]
  4. MIRTAZAPINE [Concomitant]
     Indication: DEPRESSION
  5. MIRTAZAPINE [Concomitant]
     Indication: PSYCHOTIC DISORDER
  6. PANTOPRAZOLE SODIUM [Concomitant]
     Indication: DUODENOGASTRIC REFLUX

REACTIONS (1)
  - PRIAPISM [None]
